FAERS Safety Report 24731222 (Version 2)
Quarter: 2024Q4

REPORT INFORMATION
  Report Type: Spontaneous
  Country: JP (occurrence: None)
  Receive Date: 20241213
  Receipt Date: 20241227
  Transmission Date: 20250115
  Serious: Yes (Other)
  Sender: ALEXION PHARMACEUTICALS
  Company Number: JP-ASTRAZENECA-240103633_064320_P_1

PATIENT
  Age: 62 Year
  Weight: 78 kg

DRUGS (18)
  1. NEXIUM [Suspect]
     Active Substance: ESOMEPRAZOLE MAGNESIUM
     Indication: Prophylaxis
  2. NEXIUM [Suspect]
     Active Substance: ESOMEPRAZOLE MAGNESIUM
     Route: 048
  3. NEXIUM [Suspect]
     Active Substance: ESOMEPRAZOLE MAGNESIUM
  4. NEXIUM [Suspect]
     Active Substance: ESOMEPRAZOLE MAGNESIUM
     Route: 048
  5. ANDEXXA [Suspect]
     Active Substance: ANDEXANET ALFA
     Indication: Putamen haemorrhage
     Dosage: 800 MG IV AT 30 MG/MIN, FOLLOWED BY 960 MG IV AT 8 MG/MIN FOR 2 HOURS
  6. ANDEXXA [Suspect]
     Active Substance: ANDEXANET ALFA
     Dosage: 800 MG IV AT 30 MG/MIN, FOLLOWED BY 960 MG IV AT 8 MG/MIN FOR 2 HOURS
     Route: 042
  7. ANDEXXA [Suspect]
     Active Substance: ANDEXANET ALFA
     Dosage: 800 MG IV AT 30 MG/MIN, FOLLOWED BY 960 MG IV AT 8 MG/MIN FOR 2 HOURS
  8. ANDEXXA [Suspect]
     Active Substance: ANDEXANET ALFA
     Dosage: 800 MG IV AT 30 MG/MIN, FOLLOWED BY 960 MG IV AT 8 MG/MIN FOR 2 HOURS
     Route: 042
  9. CEFAZOLIN SODIUM [Concomitant]
     Active Substance: CEFAZOLIN SODIUM
     Indication: Infection prophylaxis
     Route: 041
  10. CEFAZOLIN SODIUM [Concomitant]
     Active Substance: CEFAZOLIN SODIUM
  11. NICARDIPINE HYDROCHLORIDE [Concomitant]
     Active Substance: NICARDIPINE HYDROCHLORIDE
     Indication: Hypertension
     Route: 041
  12. NICARDIPINE HYDROCHLORIDE [Concomitant]
     Active Substance: NICARDIPINE HYDROCHLORIDE
  13. EDOXABAN TOSYLATE [Concomitant]
     Active Substance: EDOXABAN TOSYLATE
     Indication: Atrial fibrillation
     Route: 048
  14. EDOXABAN TOSYLATE [Concomitant]
     Active Substance: EDOXABAN TOSYLATE
  15. DOTINURAD [Concomitant]
     Active Substance: DOTINURAD
     Indication: Gout
     Route: 048
  16. DOTINURAD [Concomitant]
     Active Substance: DOTINURAD
  17. OLMESARTAN MEDOXOMIL [Concomitant]
     Active Substance: OLMESARTAN MEDOXOMIL
     Indication: Hypertension
     Route: 048
  18. OLMESARTAN MEDOXOMIL [Concomitant]
     Active Substance: OLMESARTAN MEDOXOMIL

REACTIONS (3)
  - Cerebral infarction [Recovering/Resolving]
  - Peripheral embolism [Recovering/Resolving]
  - Off label use [Unknown]
